FAERS Safety Report 7443119-3 (Version None)
Quarter: 2011Q2

REPORT INFORMATION
  Report Type: 
  Country: None (occurrence: None)
  Receive Date: 20110420
  Receipt Date: 20110413
  Transmission Date: 20111010
  Serious: Yes (Other)
  Sender: FDA-Public Use
  Company Number: WAES 1104USA02006

PATIENT
  Age: 74 Year
  Sex: Female

DRUGS (1)
  1. FOSAMAX PLUS D [Suspect]
     Indication: OSTEOPOROSIS
     Dosage: 70 MG/WKY PO
     Route: 048
     Dates: start: 20050101

REACTIONS (2)
  - TRAUMATIC FRACTURE [None]
  - HUMERUS FRACTURE [None]
